FAERS Safety Report 19252695 (Version 1)
Quarter: 2021Q2

REPORT INFORMATION
  Report Type: Report from Study
  Country: CA (occurrence: CA)
  Receive Date: 20210513
  Receipt Date: 20210513
  Transmission Date: 20210717
  Serious: Yes (Other)
  Sender: FDA-Public Use
  Company Number: CA-TAKEDA-2020TUS049088

PATIENT
  Age: 75 Year
  Sex: Female

DRUGS (3)
  1. CUVITRU [Suspect]
     Active Substance: HUMAN IMMUNOGLOBULIN G
     Indication: SECONDARY IMMUNODEFICIENCY
     Dosage: 8 GRAM, 1/WEEK
     Route: 065
     Dates: start: 20180922
  2. CALQUENCE [Concomitant]
     Active Substance: ACALABRUTINIB
     Indication: NEOPLASM MALIGNANT
     Dosage: UNK
     Route: 048
     Dates: start: 20200617
  3. IBRUTINIB [Concomitant]
     Active Substance: IBRUTINIB
     Indication: NEOPLASM MALIGNANT
     Dosage: UNK
     Dates: start: 2018, end: 20200615

REACTIONS (3)
  - Cough [Unknown]
  - Infusion site pain [Recovered/Resolved]
  - Neoplasm malignant [Unknown]

NARRATIVE: CASE EVENT DATE: 20201027
